FAERS Safety Report 8597347-4 (Version None)
Quarter: 2012Q3

REPORT INFORMATION
  Report Type: 
  Country: None (occurrence: None)
  Receive Date: 20120816
  Receipt Date: 20120814
  Transmission Date: 20120928
  Serious: No
  Sender: FDA-Public Use
  Company Number: US-PFIZER INC-2012199550

PATIENT
  Sex: Female
  Weight: 74.83 kg

DRUGS (11)
  1. OXYCODONE [Concomitant]
     Indication: BACK PAIN
     Dosage: 10 MG, 4X/DAY
  2. ASPIRIN [Concomitant]
     Indication: BLOOD CHOLESTEROL INCREASED
     Dosage: 81 MG, DAILY
  3. EFFEXOR [Suspect]
     Indication: FIBROMYALGIA
     Dosage: 75 MG, DAILY
     Route: 048
  4. XANAX [Suspect]
     Indication: SLEEP DISORDER
     Dosage: UNK
     Route: 048
  5. MORPHINE SULFATE [Concomitant]
     Indication: PAIN
     Dosage: 100 MG, 2X/DAY
  6. OXYCODONE [Concomitant]
     Indication: NECK PAIN
  7. OXYCODONE [Concomitant]
     Indication: FIBROMYALGIA
  8. SIMVASTATIN [Concomitant]
     Indication: BLOOD CHOLESTEROL INCREASED
     Dosage: 30 MG, DAILY
  9. SYNTHROID [Concomitant]
     Indication: HYPOTHYROIDISM
     Dosage: 0.05 MG, FIVE DAYS A WEEK
     Route: 048
  10. RELAFEN [Concomitant]
     Indication: FIBROMYALGIA
     Dosage: 500 MG, 2X/DAY
     Route: 048
  11. SOMA [Concomitant]
     Indication: MUSCLE RELAXANT THERAPY
     Dosage: 350 MG, 4X/DAY
     Route: 048

REACTIONS (2)
  - DRUG INEFFECTIVE [None]
  - OFF LABEL USE [None]
